FAERS Safety Report 7112167-5 (Version None)
Quarter: 2010Q4

REPORT INFORMATION
  Report Type: 
  Country: None (occurrence: None)
  Receive Date: 20101119
  Receipt Date: 20100125
  Transmission Date: 20110411
  Serious: No
  Sender: FDA-Public Use
  Company Number: A0841520A

PATIENT
  Age: 60 Year
  Sex: Male

DRUGS (11)
  1. AVODART [Suspect]
     Dosage: .5MG PER DAY
     Route: 048
     Dates: start: 20090901
  2. ASPIRIN [Concomitant]
     Dosage: 81MG PER DAY
  3. ACTOS [Concomitant]
  4. METFORMIN HCL [Concomitant]
     Dosage: 500MG TWICE PER DAY
  5. SIMVASTATIN [Concomitant]
     Dosage: 80MG PER DAY
  6. LISINOPRIL [Concomitant]
     Dosage: 30MG PER DAY
  7. METOPROLOL [Concomitant]
     Dosage: 100MG TWICE PER DAY
  8. SOTALOL [Concomitant]
     Dosage: 80MG TWICE PER DAY
  9. GEMFIBROZIL [Concomitant]
  10. DIAZIDE [Concomitant]
     Dosage: .5TAB PER DAY
  11. ASCORBIC ACID [Concomitant]

REACTIONS (1)
  - PENILE ERYTHEMA [None]
